FAERS Safety Report 19767970 (Version 1)
Quarter: 2021Q3

REPORT INFORMATION
  Report Type: Spontaneous
  Country: AU (occurrence: AU)
  Receive Date: 20210831
  Receipt Date: 20210831
  Transmission Date: 20211014
  Serious: Yes (Hospitalization)
  Sender: FDA-Public Use
  Company Number: AU-CELGENEUS-AUS-20210807798

PATIENT
  Sex: Male

DRUGS (2)
  1. REVLIMID [Suspect]
     Active Substance: LENALIDOMIDE
     Indication: PLASMA CELL MYELOMA
     Dosage: 10 MILLIGRAM
     Route: 048
     Dates: start: 20210823
  2. REVLIMID [Suspect]
     Active Substance: LENALIDOMIDE
     Indication: TRANSPLANT
     Dosage: 10 MILLIGRAM
     Route: 048
     Dates: start: 20210616

REACTIONS (2)
  - Leg amputation [Unknown]
  - Malaise [Unknown]

NARRATIVE: CASE EVENT DATE: 2021
